FAERS Safety Report 21757375 (Version 1)
Quarter: 2022Q4

REPORT INFORMATION
  Report Type: Spontaneous
  Country: TR (occurrence: TR)
  Receive Date: 20221220
  Receipt Date: 20221220
  Transmission Date: 20230113
  Serious: Yes (Death, Other)
  Sender: FDA-Public Use
  Company Number: TR-STRIDES ARCOLAB LIMITED-2022SP017021

PATIENT
  Age: 21 Year
  Sex: Male

DRUGS (14)
  1. PREDNISOLONE [Suspect]
     Active Substance: PREDNISOLONE
     Indication: B precursor type acute leukaemia
     Dosage: UNK, (AS PART OF HYPERFRACTIONATED-CVAD REGIMEN)
     Route: 065
  2. PREDNISOLONE [Suspect]
     Active Substance: PREDNISOLONE
     Indication: Iris disorder
  3. METHOTREXATE [Suspect]
     Active Substance: METHOTREXATE
     Indication: B precursor type acute leukaemia
     Dosage: UNK, ONCE A WEEK (DOSAGE: 400MICROG/0.1ML/WEEK; RECEIVED FOUR DOSES) (INJECTION)
  4. METHOTREXATE [Suspect]
     Active Substance: METHOTREXATE
     Indication: Iris disorder
  5. DOXORUBICIN [Suspect]
     Active Substance: DOXORUBICIN
     Indication: B precursor type acute leukaemia
     Dosage: UNK, (AS PART OF HYPERFRACTIONATED-CVAD REGIMEN)
     Route: 065
  6. DOXORUBICIN [Suspect]
     Active Substance: DOXORUBICIN
     Indication: Iris disorder
  7. CYCLOPHOSPHAMIDE [Suspect]
     Active Substance: CYCLOPHOSPHAMIDE
     Indication: B precursor type acute leukaemia
     Dosage: UNK, (AS PART OF HYPERFRACTIONATED-CVAD REGIMEN)
     Route: 065
  8. CYCLOPHOSPHAMIDE [Suspect]
     Active Substance: CYCLOPHOSPHAMIDE
     Indication: Iris disorder
  9. VINCRISTINE [Suspect]
     Active Substance: VINCRISTINE
     Indication: B precursor type acute leukaemia
     Dosage: UNK, (AS PART OF HYPERFRACTIONATED-CVAD REGIMEN)
     Route: 065
  10. VINCRISTINE [Suspect]
     Active Substance: VINCRISTINE
     Indication: Iris disorder
  11. DEXAMETHASONE [Suspect]
     Active Substance: DEXAMETHASONE
     Indication: B precursor type acute leukaemia
     Dosage: UNK, (PER HOURS)
     Route: 061
  12. DEXAMETHASONE [Suspect]
     Active Substance: DEXAMETHASONE
     Indication: Iris disorder
  13. DORZOLAMIDE\TIMOLOL [Concomitant]
     Active Substance: DORZOLAMIDE\TIMOLOL
     Indication: B precursor type acute leukaemia
     Dosage: UNK, BID (DOSE: DORZOLAMIDE/TIMOLOL 20MG/ML+5MG/ML)
     Route: 061
  14. DORZOLAMIDE\TIMOLOL [Concomitant]
     Active Substance: DORZOLAMIDE\TIMOLOL
     Indication: Iris disorder

REACTIONS (2)
  - Pneumonia [Fatal]
  - Corneal disorder [Recovered/Resolved]
